FAERS Safety Report 10620211 (Version 1)
Quarter: 2014Q4

REPORT INFORMATION
  Report Type: Spontaneous
  Country: IT (occurrence: None)
  Receive Date: 20141128
  Receipt Date: 20141128
  Transmission Date: 20150529
  Serious: Yes (Other)
  Sender: FDA-Public Use
  Company Number: IMP_08235_2014

PATIENT
  Age: 69 Year
  Sex: Female

DRUGS (1)
  1. ANAGRELIDE (ANAGRELIDE) [Suspect]
     Active Substance: ANAGRELIDE
     Indication: ESSENTIAL THROMBOCYTHAEMIA
     Dosage: DF

REACTIONS (1)
  - Atrial flutter [None]
